FAERS Safety Report 20328764 (Version 1)
Quarter: 2022Q1

REPORT INFORMATION
  Report Type: Report from Study
  Country: FR (occurrence: None)
  Receive Date: 20220112
  Receipt Date: 20220112
  Transmission Date: 20220423
  Serious: Yes (Other)
  Sender: FDA-Public Use
  Company Number: FR-Merck Healthcare KGaA-9212366

PATIENT
  Sex: Female

DRUGS (2)
  1. LEVOTHYROXINE [Suspect]
     Active Substance: LEVOTHYROXINE
     Indication: Product used for unknown indication
     Dosage: NEW FORMULATION
  2. PFIZER-BIONTECH COVID-19 VACCINE [Suspect]
     Active Substance: TOZINAMERAN
     Indication: COVID-19 immunisation

REACTIONS (13)
  - Hypotension [Unknown]
  - Syncope [Unknown]
  - Loss of consciousness [Unknown]
  - Daydreaming [Unknown]
  - Amnesia [Unknown]
  - COVID-19 [Unknown]
  - Neurological symptom [Unknown]
  - Feeling abnormal [Unknown]
  - Disorientation [Unknown]
  - Fatigue [Unknown]
  - Back pain [Unknown]
  - Insomnia [Unknown]
  - Headache [Unknown]

NARRATIVE: CASE EVENT DATE: 20170101
